FAERS Safety Report 23439698 (Version 2)
Quarter: 2024Q1

REPORT INFORMATION
  Report Type: Spontaneous
  Country: US (occurrence: US)
  Receive Date: 20240124
  Receipt Date: 20240125
  Transmission Date: 20240410
  Serious: Yes (Other)
  Sender: FDA-Public Use
  Company Number: US-MYLANLABS-2024M1007349

PATIENT
  Sex: Female
  Weight: 73.48 kg

DRUGS (5)
  1. ATORVASTATIN [Suspect]
     Active Substance: ATORVASTATIN
     Indication: Product used for unknown indication
     Dosage: UNK
     Route: 065
     Dates: start: 2016
  2. ANASTROZOLE [Concomitant]
     Active Substance: ANASTROZOLE
     Indication: Breast cancer metastatic
     Dosage: 1 MILLIGRAM, QD
     Route: 065
     Dates: start: 202008, end: 202311
  3. CITALOPRAM [Concomitant]
     Active Substance: CITALOPRAM HYDROBROMIDE
     Indication: Depression
     Dosage: 20 MILLIGRAM, QD
     Route: 065
     Dates: start: 2010
  4. CINACALCET [Concomitant]
     Active Substance: CINACALCET
     Indication: Hypophosphataemia
     Dosage: 30 MILLIGRAM, QOD
     Route: 065
     Dates: start: 2022
  5. IBRANCE [Concomitant]
     Active Substance: PALBOCICLIB
     Indication: Breast cancer metastatic
     Dosage: 100 MILLIGRAM, QD
     Route: 065
     Dates: start: 202008, end: 20231101

REACTIONS (1)
  - Carbohydrate antigen 15-3 increased [Not Recovered/Not Resolved]
